FAERS Safety Report 21480231 (Version 1)
Quarter: 2022Q4

REPORT INFORMATION
  Report Type: Spontaneous
  Country: MY (occurrence: MY)
  Receive Date: 20221019
  Receipt Date: 20221019
  Transmission Date: 20230113
  Serious: Yes (Other)
  Sender: FDA-Public Use
  Company Number: MY-PFIZER INC-PV202200085899

PATIENT

DRUGS (1)
  1. ZYVOX [Suspect]
     Active Substance: LINEZOLID
     Dosage: UNK
     Route: 048

REACTIONS (2)
  - Thrombocytopenia [Unknown]
  - Haemoglobin decreased [Unknown]
